FAERS Safety Report 13321831 (Version 1)
Quarter: 2017Q1

REPORT INFORMATION
  Report Type: Spontaneous
  Country: US (occurrence: US)
  Receive Date: 20170310
  Receipt Date: 20170310
  Transmission Date: 20170428
  Serious: Yes (Hospitalization)
  Sender: FDA-Public Use
  Company Number: None

PATIENT
  Age: 67 Year
  Sex: Female
  Weight: 129.4 kg

DRUGS (3)
  1. LENALIDOMIDE (CC-5013) [Suspect]
     Active Substance: LENALIDOMIDE
     Dates: end: 20170303
  2. VELCADE [Suspect]
     Active Substance: BORTEZOMIB
     Dates: end: 20170228
  3. DEXAMETHASONE. [Suspect]
     Active Substance: DEXAMETHASONE
     Dates: end: 20170228

REACTIONS (10)
  - Mental status changes [None]
  - Urinary tract infection [None]
  - Septic shock [None]
  - Sepsis [None]
  - Hypotension [None]
  - Liver disorder [None]
  - Pneumonia [None]
  - Acute kidney injury [None]
  - Thrombocytopenia [None]
  - Atrial fibrillation [None]

NARRATIVE: CASE EVENT DATE: 20170303
